FAERS Safety Report 6902373-4 (Version None)
Quarter: 2010Q3

REPORT INFORMATION
  Report Type: 
  Country: None (occurrence: None)
  Receive Date: 20100803
  Receipt Date: 20080523
  Transmission Date: 20110219
  Serious: No
  Sender: FDA-Public Use
  Company Number: US-PFIZER INC-2008044560

PATIENT
  Sex: Male
  Weight: 80.9 kg

DRUGS (6)
  1. LYRICA [Suspect]
     Indication: ROAD TRAFFIC ACCIDENT
     Route: 048
     Dates: start: 20080522
  2. PROTONIX [Concomitant]
  3. DRUG, UNSPECIFIED [Concomitant]
  4. LUNESTA [Concomitant]
  5. VITAMIN TAB [Concomitant]
  6. MOBIC [Concomitant]

REACTIONS (2)
  - ABDOMINAL DISTENSION [None]
  - ABDOMINAL PAIN UPPER [None]
